FAERS Safety Report 25612968 (Version 1)
Quarter: 2025Q3

REPORT INFORMATION
  Report Type: Spontaneous
  Country: US (occurrence: US)
  Receive Date: 20250728
  Receipt Date: 20250728
  Transmission Date: 20251020
  Serious: No
  Sender: DR REDDYS
  Company Number: US-DRL-USA-USA/2025/06/009489

PATIENT
  Age: 61 Year
  Sex: Female
  Weight: 62.14 kg

DRUGS (1)
  1. TAMOXIFEN CITRATE [Suspect]
     Active Substance: TAMOXIFEN CITRATE
     Indication: Product used for unknown indication
     Route: 065

REACTIONS (2)
  - Poor quality product administered [Not Recovered/Not Resolved]
  - Product quality issue [Not Recovered/Not Resolved]
